FAERS Safety Report 7288007-0 (Version None)
Quarter: 2011Q1

REPORT INFORMATION
  Report Type: 
  Country: None (occurrence: None)
  Receive Date: 20110211
  Receipt Date: 20110131
  Transmission Date: 20110831
  Serious: Yes (Hospitalization)
  Sender: FDA-Public Use
  Company Number: PHHY2011US08430

PATIENT
  Sex: Male

DRUGS (6)
  1. TEKTURNA HCT [Suspect]
     Dosage: 300/25 MG ONE PER DAY
     Dates: start: 20110118
  2. PROCARDIA [Suspect]
  3. EILTIADEM CD [Concomitant]
  4. ASPIRIN [Concomitant]
  5. PROTONIX [Concomitant]
  6. POTASSIUM [Concomitant]

REACTIONS (4)
  - ANGIOPATHY [None]
  - BLOOD PRESSURE DECREASED [None]
  - LOSS OF CONSCIOUSNESS [None]
  - LIMB DISCOMFORT [None]
